FAERS Safety Report 6291727-8 (Version None)
Quarter: 2009Q3

REPORT INFORMATION
  Report Type: 
  Country: None (occurrence: None)
  Receive Date: 20090730
  Receipt Date: 20090713
  Transmission Date: 20100115
  Serious: No
  Sender: FDA-Public Use
  Company Number: PHHY2009JP29089

PATIENT
  Sex: Male

DRUGS (4)
  1. AMN107 AMN+CAP [Suspect]
     Indication: CHRONIC MYELOID LEUKAEMIA
     Dosage: 800 MG/DAY
     Route: 048
     Dates: start: 20090522
  2. UNIPHYL LA [Concomitant]
     Dosage: 400 MG, UNK
     Route: 048
     Dates: start: 20070614
  3. PREDNISOLONE [Concomitant]
     Dosage: 4 MG, UNK
     Route: 048
     Dates: start: 20070719
  4. DIART [Concomitant]
     Dosage: 30 MG, UNK
     Route: 048
     Dates: start: 20071006

REACTIONS (1)
  - ELECTROCARDIOGRAM QT PROLONGED [None]
